FAERS Safety Report 9655561 (Version 1)
Quarter: 2013Q4

REPORT INFORMATION
  Report Type: Spontaneous
  Country: GB (occurrence: GB)
  Receive Date: 20131029
  Receipt Date: 20131029
  Transmission Date: 20140711
  Serious: Yes (Hospitalization)
  Sender: FDA-Public Use
  Company Number: GB-009507513-1310GBR011516

PATIENT
  Age: 56 Year
  Sex: Male

DRUGS (10)
  1. MONTELUKAST SODIUM [Suspect]
     Dosage: 10 MG, QD
     Route: 048
  2. AZITHROMYCIN [Concomitant]
  3. CARBAMAZEPINE [Concomitant]
  4. FLUTICASONE [Concomitant]
  5. FOLIC ACID [Concomitant]
  6. LORATADINE [Concomitant]
  7. PREGABALIN [Concomitant]
  8. SERETIDE [Concomitant]
  9. TIOTROPIUM BROMIDE [Concomitant]
  10. WARFARIN [Concomitant]

REACTIONS (1)
  - Allergic granulomatous angiitis [Not Recovered/Not Resolved]
